FAERS Safety Report 24267790 (Version 2)
Quarter: 2024Q3

REPORT INFORMATION
  Report Type: Other
  Country: KR (occurrence: KR)
  Receive Date: 20240830
  Receipt Date: 20240917
  Transmission Date: 20241016
  Serious: No
  Sender: SIGA TECHNOLOGIES
  Company Number: KR-SIGA Technologies, Inc.-2161014

PATIENT
  Age: 23 Year
  Sex: Male

DRUGS (3)
  1. TPOXX [Suspect]
     Active Substance: TECOVIRIMAT
     Indication: Monkeypox
  2. PIPERACILLIN AND TAZOBACTAM [Concomitant]
     Active Substance: PIPERACILLIN SODIUM\TAZOBACTAM SODIUM
  3. MEROPENEM [Concomitant]
     Active Substance: MEROPENEM

REACTIONS (3)
  - Drug resistance [Unknown]
  - Off label use [Unknown]
  - Incorrect product administration duration [Unknown]
